FAERS Safety Report 9391840 (Version 3)
Quarter: 2013Q3

REPORT INFORMATION
  Report Type: Spontaneous
  Country: IT (occurrence: IT)
  Receive Date: 20130709
  Receipt Date: 20130718
  Transmission Date: 20140515
  Serious: Yes (Hospitalization, Other)
  Sender: FDA-Public Use
  Company Number: IT-AMGEN-ITASP2013047792

PATIENT
  Age: 59 Year
  Sex: Male

DRUGS (6)
  1. ENBREL [Suspect]
     Indication: PSORIASIS
     Dosage: 50 MG, WEEKLY
     Route: 058
     Dates: start: 20080318, end: 20130619
  2. ENBREL [Suspect]
     Indication: PSORIATIC ARTHROPATHY
  3. LAMIVUDINE [Concomitant]
     Dosage: UNK
  4. PERINDOPRIL ERBUMINE [Concomitant]
     Dosage: UNK
  5. INDAPAMIDE HEMIHYDRATE [Concomitant]
     Dosage: UNK
  6. GLICONORM [Concomitant]
     Dosage: UNK

REACTIONS (4)
  - Transient ischaemic attack [Recovered/Resolved]
  - Dysarthria [Recovered/Resolved]
  - Hemiparesis [Recovered/Resolved]
  - Leukoencephalopathy [Unknown]
